FAERS Safety Report 18020312 (Version 2)
Quarter: 2020Q3

REPORT INFORMATION
  Report Type: Report from Study
  Country: None (occurrence: US)
  Receive Date: 20200714
  Receipt Date: 20200820
  Transmission Date: 20201103
  Serious: Yes (Other)
  Sender: FDA-Public Use
  Company Number: US-ABBVIE-20K-163-3478234-00

PATIENT
  Age: 64 Year
  Sex: Male
  Weight: 69.01 kg

DRUGS (33)
  1. VENCLEXTA [Suspect]
     Active Substance: VENETOCLAX
     Indication: ACUTE MYELOID LEUKAEMIA
     Dosage: 100MG ON DAY 1
     Route: 048
     Dates: start: 20191217, end: 20191217
  2. FLOMAX [Concomitant]
     Active Substance: TAMSULOSIN HYDROCHLORIDE
     Indication: PRODUCT USED FOR UNKNOWN INDICATION
     Dosage: 0.4MG 24 HR CAPSULE
  3. TOPROL XL [Concomitant]
     Active Substance: METOPROLOL SUCCINATE
     Indication: PRODUCT USED FOR UNKNOWN INDICATION
     Dosage: 25MG 24 HR TABLET
  4. MAG?OX [Concomitant]
     Active Substance: MAGNESIUM OXIDE
     Indication: PRODUCT USED FOR UNKNOWN INDICATION
     Route: 048
  5. PACERONE [Concomitant]
     Active Substance: AMIODARONE HYDROCHLORIDE
     Indication: PRODUCT USED FOR UNKNOWN INDICATION
  6. PROVENTIL HFA [Concomitant]
     Active Substance: ALBUTEROL SULFATE
     Indication: PRODUCT USED FOR UNKNOWN INDICATION
     Dosage: INHALE INTO LUNGS/90MCG/ACTUATION INHALER
  7. FLONASE [Concomitant]
     Active Substance: FLUTICASONE PROPIONATE
     Indication: PRODUCT USED FOR UNKNOWN INDICATION
     Dosage: 50MCG/ACTUATION NASAL SPRAY
     Route: 045
  8. VENCLEXTA [Suspect]
     Active Substance: VENETOCLAX
     Route: 048
     Dates: start: 20200318
  9. VIDAZA [Suspect]
     Active Substance: AZACITIDINE
     Indication: PRODUCT USED FOR UNKNOWN INDICATION
     Dosage: DAILY*5 EVERY 4 WEEKS
     Route: 065
     Dates: start: 20190708
  10. VIDAZA [Suspect]
     Active Substance: AZACITIDINE
     Dosage: DAILY*3 EVERY 2 WEEKS
     Route: 065
  11. NOXAFIL [Concomitant]
     Active Substance: POSACONAZOLE
     Indication: PRODUCT USED FOR UNKNOWN INDICATION
     Dosage: 100MG DELAYED RELEASE TABLET
  12. ROXICODONE [Concomitant]
     Active Substance: OXYCODONE HYDROCHLORIDE
     Indication: PRODUCT USED FOR UNKNOWN INDICATION
     Dosage: 5MG IMMEDIATE RELEASE TABLET
  13. ZESTRIL [Concomitant]
     Active Substance: LISINOPRIL
     Indication: PRODUCT USED FOR UNKNOWN INDICATION
  14. ZYLOPRIM [Concomitant]
     Active Substance: ALLOPURINOL
     Indication: PRODUCT USED FOR UNKNOWN INDICATION
     Route: 048
  15. VENCLEXTA [Suspect]
     Active Substance: VENETOCLAX
     Indication: MYELODYSPLASTIC SYNDROME
     Dosage: 400MG DAILY ON DAY 3 AND EVERY DAY THEREAFTER
     Route: 048
     Dates: start: 20191219
  16. MYCOSTATIN [Concomitant]
     Active Substance: NYSTATIN
     Indication: PRODUCT USED FOR UNKNOWN INDICATION
     Dosage: 100,000 UNITS/ML SUSPENSION SWISH AND SWALLOW. ONE HALF OF DOSE IN EACH SIDE OF MOUTH
     Route: 048
  17. PRINIVIL [Concomitant]
     Active Substance: LISINOPRIL
     Indication: PRODUCT USED FOR UNKNOWN INDICATION
  18. CRESEMBA [Concomitant]
     Active Substance: ISAVUCONAZONIUM SULFATE
     Indication: PRODUCT USED FOR UNKNOWN INDICATION
     Dosage: 186MG CAPSULE
  19. VITAMIN D3 [Concomitant]
     Active Substance: CHOLECALCIFEROL
     Indication: PRODUCT USED FOR UNKNOWN INDICATION
     Dosage: 50000 UNIT NOT REPORTED/50,000 UNIT CAPSULE
     Route: 048
  20. SENNA [Concomitant]
     Active Substance: SENNA LEAF\SENNOSIDES\SENNOSIDES A AND B
     Indication: PRODUCT USED FOR UNKNOWN INDICATION
     Dosage: 8.6MG TABLET
  21. COMPAZINE [Concomitant]
     Active Substance: PROCHLORPERAZINE MALEATE
     Indication: VOMITING
  22. MIRALAX [Concomitant]
     Active Substance: POLYETHYLENE GLYCOL 3350
     Indication: PRODUCT USED FOR UNKNOWN INDICATION
     Dosage: 17G/ DOSE POWDER
     Route: 048
  23. ZYRTEC [Concomitant]
     Active Substance: CETIRIZINE HYDROCHLORIDE
     Indication: PRODUCT USED FOR UNKNOWN INDICATION
     Route: 048
  24. ARANESP [Concomitant]
     Active Substance: DARBEPOETIN ALFA
     Indication: PRODUCT USED FOR UNKNOWN INDICATION
  25. VENCLEXTA [Suspect]
     Active Substance: VENETOCLAX
     Indication: CHRONIC MYELOMONOCYTIC LEUKAEMIA
     Dosage: 200MG ON DAY 2
     Route: 048
     Dates: start: 20191218, end: 20191218
  26. VANTIN [Concomitant]
     Active Substance: CEFPODOXIME PROXETIL
     Indication: PRODUCT USED FOR UNKNOWN INDICATION
  27. ZOVIRAX [Concomitant]
     Active Substance: ACYCLOVIR
     Indication: PRODUCT USED FOR UNKNOWN INDICATION
     Route: 048
  28. TYLENOL [Concomitant]
     Active Substance: ACETAMINOPHEN
     Indication: PRODUCT USED FOR UNKNOWN INDICATION
     Route: 048
  29. HYDROXYUREA. [Concomitant]
     Active Substance: HYDROXYUREA
     Indication: PRODUCT USED FOR UNKNOWN INDICATION
     Route: 048
     Dates: start: 20191111, end: 20191217
  30. COMPAZINE [Concomitant]
     Active Substance: PROCHLORPERAZINE MALEATE
     Indication: NAUSEA
     Route: 048
  31. ZOFRAN [Concomitant]
     Active Substance: ONDANSETRON HYDROCHLORIDE
     Indication: NAUSEA
     Route: 048
  32. NORCO [Concomitant]
     Active Substance: ACETAMINOPHEN\HYDROCODONE BITARTRATE
     Indication: PAIN
     Dosage: 5?325MG PER TABLET 1 TAB AS EVERY 6 HRS NEEDED
  33. ALLOPURINOL. [Concomitant]
     Active Substance: ALLOPURINOL
     Indication: PRODUCT USED FOR UNKNOWN INDICATION

REACTIONS (32)
  - Cardiac arrest [Unknown]
  - Disturbance in attention [Unknown]
  - Anxiety [Unknown]
  - Arthralgia [Unknown]
  - Pain [Unknown]
  - Increased tendency to bruise [Unknown]
  - Dizziness [Unknown]
  - Constipation [Unknown]
  - Candida infection [Unknown]
  - Back pain [Unknown]
  - Diarrhoea [Unknown]
  - Immunodeficiency [Unknown]
  - Ventricular tachycardia [Unknown]
  - Deafness [Unknown]
  - Pancytopenia [Unknown]
  - Joint range of motion decreased [Unknown]
  - Depressed mood [Unknown]
  - Nervousness [Unknown]
  - Drug ineffective [Unknown]
  - Nausea [Unknown]
  - Dysphagia [Unknown]
  - Visual impairment [Unknown]
  - Myalgia [Unknown]
  - Dyspnoea exertional [Unknown]
  - Vomiting [Unknown]
  - Off label use [Unknown]
  - Fatigue [Unknown]
  - Neutropenia [Unknown]
  - Stomatitis [Unknown]
  - Temperature intolerance [Unknown]
  - Sleep disorder [Unknown]
  - Rash [Unknown]

NARRATIVE: CASE EVENT DATE: 20191230
